FAERS Safety Report 21019342 (Version 1)
Quarter: 2022Q2

REPORT INFORMATION
  Report Type: Spontaneous
  Country: US (occurrence: US)
  Receive Date: 20220628
  Receipt Date: 20220628
  Transmission Date: 20220721
  Serious: No
  Sender: FDA-Public Use
  Company Number: US-SA-SAC20220316000059

PATIENT
  Sex: Male
  Weight: 79.365 kg

DRUGS (5)
  1. DUPIXENT [Suspect]
     Active Substance: DUPILUMAB
     Indication: Asthma
     Dosage: 300 MG, QOW
     Route: 058
     Dates: start: 20220301
  2. ALBUTEROL SULFATE [Concomitant]
     Active Substance: ALBUTEROL SULFATE
  3. PREDNISONE [Concomitant]
     Active Substance: PREDNISONE
     Dosage: NOW ON 10 MG PREDNISONE (WAS ON 4 MG DAILY BEFORE DUPIXENT)
  4. SYMBICORT [Concomitant]
     Active Substance: BUDESONIDE\FORMOTEROL FUMARATE DIHYDRATE
     Dosage: 80-4.5 MCG HFA AER AD
  5. MODERNA COVID-19 VACCINE [Concomitant]
     Active Substance: ELASOMERAN
     Indication: Immunisation

REACTIONS (4)
  - Cough [Unknown]
  - Chest pain [Unknown]
  - Abdominal pain upper [Unknown]
  - Asthma [Unknown]

NARRATIVE: CASE EVENT DATE: 20220101
